FAERS Safety Report 8405810-1 (Version None)
Quarter: 2012Q2

REPORT INFORMATION
  Report Type: 
  Country: None (occurrence: None)
  Receive Date: 20120529
  Receipt Date: 20051202
  Transmission Date: 20120825
  Serious: Yes (Hospitalization)
  Sender: FDA-Public Use
  Company Number: 15691-USA-05-3011

PATIENT
  Age: 61 Year
  Sex: Male

DRUGS (16)
  1. TOLVAPTAN (TOLVAPTAN(V4.1)) 30MG [Suspect]
     Indication: CARDIAC FAILURE CONGESTIVE
     Dosage: 30 MG, QD, ORAL ; 30 MG, QD, ORAL
     Route: 048
     Dates: start: 20041105, end: 20051119
  2. TOLVAPTAN (TOLVAPTAN(V4.1)) 30MG [Suspect]
     Indication: CARDIAC FAILURE CONGESTIVE
     Dosage: 30 MG, QD, ORAL ; 30 MG, QD, ORAL
     Route: 048
     Dates: start: 20051127
  3. DIGOXIN [Concomitant]
  4. INSULIN ASPART (INSULIN ASPART) [Concomitant]
  5. SIMVASTATIN [Concomitant]
  6. CLOPIDEGREL [Concomitant]
  7. FELODIPIN (FELODIPINE) [Concomitant]
  8. METOPROLOL TARTRATE [Concomitant]
  9. SPIRONOLACTONE [Concomitant]
  10. FUROSEMIDE [Concomitant]
  11. ASPIRIN [Concomitant]
  12. GLIMEPIRID (GLIMEPIRIDE) [Concomitant]
  13. INSULIN HUMANT (INSULIN HUMAN) [Concomitant]
  14. ACETYLCYSTEIN AL (ACETYLCYSTEINE) [Concomitant]
  15. RAMIPRIL [Concomitant]
  16. ZOPICLONE (ZOPICLONE) [Concomitant]

REACTIONS (5)
  - DIZZINESS [None]
  - BRADYCARDIA [None]
  - CARDIOMEGALY [None]
  - MYOCARDIAL ISCHAEMIA [None]
  - ANGINA UNSTABLE [None]
